FAERS Safety Report 16630245 (Version 1)
Quarter: 2019Q3

REPORT INFORMATION
  Report Type: Spontaneous
  Country: US (occurrence: US)
  Receive Date: 20190725
  Receipt Date: 20190725
  Transmission Date: 20191004
  Serious: Yes (Other)
  Sender: FDA-Public Use
  Company Number: US-ALKEM LABORATORIES LIMITED-US-ALKEM-2019-06681

PATIENT
  Sex: Male
  Weight: 99 kg

DRUGS (2)
  1. GABAPENTIN. [Suspect]
     Active Substance: GABAPENTIN
     Indication: PAIN
     Dosage: UNK
     Route: 065
  2. GABAPENTIN. [Suspect]
     Active Substance: GABAPENTIN
     Indication: PAIN
     Dosage: 600 MILLIGRAM, TID
     Route: 048

REACTIONS (5)
  - Haematemesis [Unknown]
  - Off label use [Unknown]
  - Neuropathy peripheral [Unknown]
  - Tinnitus [Unknown]
  - Colitis ulcerative [Not Recovered/Not Resolved]
